FAERS Safety Report 4711082-1 (Version None)
Quarter: 2005Q3

REPORT INFORMATION
  Report Type: 
  Country: None (occurrence: None)
  Receive Date: 20050707
  Receipt Date: 20050627
  Transmission Date: 20060218
  Serious: Yes (Hospitalization, Other)
  Sender: FDA-Public Use
  Company Number: HQWYE768528JUN05

PATIENT
  Age: 6 Week
  Sex: Female

DRUGS (4)
  1. PROPRANOLOL HYDROCHLORIDE [Suspect]
     Indication: HYPERTENSION
     Dosage: TRANSMAMMARY
     Route: 063
     Dates: start: 20050504, end: 20050505
  2. FERROUS FUMARATE [Concomitant]
  3. MOTILIUM [Concomitant]
  4. UVESTEROL (ASCORBIC ACID/ ERGOCALCIFEROL/ RETINOL/ TOCOPHEROL) [Concomitant]

REACTIONS (5)
  - AGITATION [None]
  - BRADYCARDIA [None]
  - DRUG EXPOSURE VIA BREAST MILK [None]
  - MYOCLONUS [None]
  - PYREXIA [None]
